FAERS Safety Report 19035362 (Version 1)
Quarter: 2021Q1

REPORT INFORMATION
  Report Type: Other
  Country: US (occurrence: US)
  Receive Date: 20210320
  Receipt Date: 20210320
  Transmission Date: 20210420
  Serious: No
  Sender: FDA-Public Use
  Company Number: US-ACORDA-ACO_168285_2021

PATIENT
  Age: 66 Year
  Sex: Female

DRUGS (3)
  1. CARBIDOPA/LEVODOPA [Concomitant]
     Active Substance: CARBIDOPA\LEVODOPA
     Indication: PRODUCT USED FOR UNKNOWN INDICATION
     Dosage: 25/100 MG: 2 CAPSULES IN THE MORNING, 2 CAPSULES IN THE AFTERNOON AND 2 IN THE EVENING
     Route: 065
  2. INBRIJA [Suspect]
     Active Substance: LEVODOPA
     Indication: ON AND OFF PHENOMENON
     Dosage: 84 MILLIGRAM, AS NEEDED, NOT TO EXCEED 5 DOSES A DAY
     Dates: start: 20210227
  3. INBRIJA [Suspect]
     Active Substance: LEVODOPA
     Indication: PARKINSON^S DISEASE

REACTIONS (1)
  - Cough [Not Recovered/Not Resolved]

NARRATIVE: CASE EVENT DATE: 20210227
